FAERS Safety Report 10210141 (Version 2)
Quarter: 2014Q2

REPORT INFORMATION
  Report Type: Spontaneous
  Country: JP (occurrence: JP)
  Receive Date: 20140602
  Receipt Date: 20140617
  Transmission Date: 20141212
  Serious: Yes (Other)
  Sender: FDA-Public Use
  Company Number: JP-SA-2014SA070092

PATIENT
  Age: 65 Year
  Sex: Female

DRUGS (1)
  1. ALLEGRA [Suspect]
     Indication: PRURITUS
     Route: 048

REACTIONS (1)
  - Rheumatoid arthritis [Unknown]
